FAERS Safety Report 6020364-5 (Version None)
Quarter: 2008Q4

REPORT INFORMATION
  Report Type: 
  Country: None (occurrence: None)
  Receive Date: 20081226
  Receipt Date: 20081222
  Transmission Date: 20090506
  Serious: Yes (Hospitalization)
  Sender: FDA-Public Use
  Company Number: FR-BRISTOL-MYERS SQUIBB COMPANY-14453039

PATIENT
  Age: 47 Year
  Sex: Male

DRUGS (4)
  1. SUSTIVA [Suspect]
     Dates: start: 20070201, end: 20070825
  2. TRUVADA [Suspect]
     Dates: start: 20070201
  3. CRESTOR [Suspect]
  4. AMLOD [Suspect]

REACTIONS (1)
  - AGRANULOCYTOSIS [None]
